FAERS Safety Report 18745460 (Version 2)
Quarter: 2021Q1

REPORT INFORMATION
  Report Type: Spontaneous
  Country: US (occurrence: US)
  Receive Date: 20210115
  Receipt Date: 20210119
  Transmission Date: 20210419
  Serious: Yes (Other)
  Sender: FDA-Public Use
  Company Number: US-ELI_LILLY_AND_COMPANY-US202101001690

PATIENT
  Sex: Female

DRUGS (5)
  1. GALCANEZUMAB 120MG [Suspect]
     Active Substance: GALCANEZUMAB
     Indication: MIGRAINE
     Dosage: 120 MG, UNKNOWN
     Route: 065
     Dates: start: 20200301
  2. GALCANEZUMAB 120MG [Suspect]
     Active Substance: GALCANEZUMAB
     Dosage: 120 MG, UNKNOWN
     Route: 065
  3. GALCANEZUMAB 120MG [Suspect]
     Active Substance: GALCANEZUMAB
     Indication: MIGRAINE
     Dosage: 120 MG, UNKNOWN
     Route: 065
     Dates: start: 20200301
  4. FIORICET [Concomitant]
     Active Substance: ACETAMINOPHEN\BUTALBITAL\CAFFEINE
     Indication: MIGRAINE
  5. GALCANEZUMAB 120MG [Suspect]
     Active Substance: GALCANEZUMAB
     Dosage: 120 MG, UNKNOWN
     Route: 065

REACTIONS (1)
  - Migraine [Unknown]
